FAERS Safety Report 8388894-9 (Version None)
Quarter: 2012Q2

REPORT INFORMATION
  Report Type: 
  Country: None (occurrence: None)
  Receive Date: 20120528
  Receipt Date: 20120516
  Transmission Date: 20120825
  Serious: Yes (Other)
  Sender: FDA-Public Use
  Company Number: US-BIOGENIDEC-2012BI017570

PATIENT
  Age: 57 Year
  Sex: Female

DRUGS (12)
  1. FLEXERIL [Concomitant]
     Route: 048
     Dates: start: 20120516
  2. ASPIRIN [Concomitant]
     Route: 048
  3. MULTI-VITAMIN [Concomitant]
     Route: 048
  4. LIDODERM [Concomitant]
     Dates: start: 20110303
  5. VITAMIN D HIGH POTENCY [Concomitant]
     Route: 048
     Dates: start: 20120508
  6. METFORMIN HCL [Concomitant]
     Route: 048
  7. PANTOPRAZOLE [Concomitant]
     Route: 048
  8. IBUPROFIN [Concomitant]
  9. IRON ACTIVE [Concomitant]
  10. TYSABRI [Suspect]
     Indication: MULTIPLE SCLEROSIS
     Route: 042
     Dates: start: 20110505, end: 20120420
  11. INSULIN [Concomitant]
  12. LOSARTAN POTASSIUM AND HYDROCHLOROTHIAZIDE [Concomitant]
     Route: 048

REACTIONS (5)
  - PROGRESSIVE MULTIFOCAL LEUKOENCEPHALOPATHY [None]
  - URINARY TRACT INFECTION [None]
  - MULTIPLE SCLEROSIS RELAPSE [None]
  - LARYNGITIS [None]
  - NAUSEA [None]
